FAERS Safety Report 8428250-8 (Version None)
Quarter: 2012Q2

REPORT INFORMATION
  Report Type: 
  Country: None (occurrence: None)
  Receive Date: 20120611
  Receipt Date: 20110825
  Transmission Date: 20120825
  Serious: No
  Sender: FDA-Public Use
  Company Number: US-ASTRAZENECA-2011SE42220

PATIENT
  Age: 59 Year
  Sex: Female

DRUGS (1)
  1. BUDESONIDE [Suspect]
     Indication: ASTHMA
     Dosage: 0.5 MG/2ML
     Route: 055

REACTIONS (2)
  - DRUG INEFFECTIVE [None]
  - ASTHMA [None]
